FAERS Safety Report 4512739-8 (Version None)
Quarter: 2004Q4

REPORT INFORMATION
  Report Type: 
  Country: None (occurrence: None)
  Receive Date: 20040928
  Receipt Date: 20040715
  Transmission Date: 20050328
  Serious: No
  Sender: FDA-Public Use
  Company Number: 04P-163-0265815-00

PATIENT
  Age: 40 Year
  Sex: Female
  Weight: 63.5036 kg

DRUGS (4)
  1. HUMIRA [Suspect]
     Indication: RHEUMATOID ARTHRITIS
     Dosage: 40 MG, 1 IN 2 WK, SUBCUTANEOUS
     Route: 058
     Dates: start: 20040531
  2. GUIAFINEX [Concomitant]
  3. MOMETASONE FUROATE [Concomitant]
  4. MNOCYCLINE [Concomitant]

REACTIONS (2)
  - INJECTION SITE REACTION [None]
  - INJECTION SITE URTICARIA [None]
